FAERS Safety Report 6856047-9 (Version None)
Quarter: 2010Q3

REPORT INFORMATION
  Report Type: 
  Country: None (occurrence: None)
  Receive Date: 20100716
  Receipt Date: 20100716
  Transmission Date: 20110219
  Serious: Yes (Other)
  Sender: FDA-Public Use
  Company Number: None

PATIENT
  Sex: Female
  Weight: 75.7507 kg

DRUGS (3)
  1. DILANTIN [Suspect]
     Dosage: PO / UKNOWN DOX
     Dates: start: 20020101
  2. FOLIC ACID [Concomitant]
  3. ATIVEN [Concomitant]

REACTIONS (3)
  - PRURITUS [None]
  - RASH [None]
  - SWELLING [None]
